FAERS Safety Report 9906994 (Version 2)
Quarter: 2014Q1

REPORT INFORMATION
  Report Type: Spontaneous
  Country: US (occurrence: US)
  Receive Date: 20140218
  Receipt Date: 20140331
  Transmission Date: 20141002
  Serious: No
  Sender: FDA-Public Use
  Company Number: US-PFIZER INC-2014046609

PATIENT
  Sex: Male

DRUGS (2)
  1. CHANTIX [Suspect]
     Dosage: UNK
  2. CHANTIX [Suspect]
     Dosage: UNK
     Dates: start: 2010

REACTIONS (8)
  - Pain [Unknown]
  - Emotional distress [Unknown]
  - Epistaxis [Unknown]
  - Headache [Unknown]
  - Disturbance in attention [Unknown]
  - Chills [Unknown]
  - Pyrexia [Unknown]
  - Scleral discolouration [Unknown]
